FAERS Safety Report 9857544 (Version 2)
Quarter: 2014Q2

REPORT INFORMATION
  Report Type: Report from Study
  Country: BR (occurrence: BR)
  Receive Date: 20140131
  Receipt Date: 20140403
  Transmission Date: 20141212
  Serious: Yes (Death)
  Sender: FDA-Public Use
  Company Number: PHHY2014BR009935

PATIENT
  Sex: Female
  Weight: 39 kg

DRUGS (8)
  1. EXELON PATCH [Suspect]
     Dosage: 4.6 MG (9 MG BASE, 5 CM2), EVERY 24 HOURS
     Route: 062
  2. ALDACTONE [Concomitant]
     Dosage: 25 MG, UNK STARTED MANY YEARS AGO
     Route: 048
  3. PROLOPA [Concomitant]
     Indication: PARKINSON^S DISEASE
     Dosage: 4 DF, DAILY
     Route: 048
  4. EFEXOR [Concomitant]
     Dosage: 1 DF, QD
     Route: 048
  5. MOTILIUM//DOMPERIDONE [Concomitant]
     Indication: ABDOMINAL DISCOMFORT
     Dosage: 1 DF, QD
     Route: 048
  6. ACETYLSALICYLIC ACID [Concomitant]
     Indication: CARDIAC FAILURE
     Dosage: 1 DF, QD
  7. QUETIAPINE FUMARATE [Concomitant]
     Indication: INSOMNIA
     Dosage: 0.5 DF, HALF TABLET DAILY SPORADIC USE
  8. PRAMIPEXOLE [Concomitant]
     Dosage: 1 DF, DAILY
     Route: 048

REACTIONS (4)
  - Acute respiratory failure [Fatal]
  - Atrial fibrillation [Fatal]
  - Cardiac failure chronic [Fatal]
  - Respiratory tract infection [Fatal]
